FAERS Safety Report 7730207-7 (Version None)
Quarter: 2011Q3

REPORT INFORMATION
  Report Type: 
  Country: None (occurrence: None)
  Receive Date: 20110824
  Receipt Date: 20110815
  Transmission Date: 20111222
  Serious: Yes (Hospitalization)
  Sender: FDA-Public Use
  Company Number: 2011029546

PATIENT
  Age: 35 Year
  Sex: Female
  Weight: 122.4712 kg

DRUGS (18)
  1. FOLIC ACID [Concomitant]
  2. HIZENTRA [Suspect]
     Indication: IMMUNODEFICIENCY COMMON VARIABLE
     Dosage: (10 G 2X/WEEK, 2 GM 10 ML VIAL;50 ML IN 2-4 SITES OVER 1-2 HOURS SUBCUTANEOUS), (4 GM 20 ML VIAL SC
     Route: 058
     Dates: start: 20110317
  3. GABAPENTIN [Concomitant]
  4. FLEXERIL [Concomitant]
  5. VITAMIN B6 [Concomitant]
  6. ACETAMINOPHEN [Concomitant]
  7. SINGULAIR [Concomitant]
  8. PRILOSEC [Concomitant]
  9. RISPERDAL [Concomitant]
  10. CONTRAST MEDIA DYE (CONTRAST MEDIA) [Suspect]
  11. KLONOPIN [Concomitant]
  12. COUMADIN [Concomitant]
  13. ZITHROMAX [Concomitant]
  14. SPIRIVA [Concomitant]
  15. HIZENTRA [Suspect]
  16. ZOLOFT (SINGULAIR) [Concomitant]
  17. DEPAKOTE [Concomitant]
  18. VITAMIN D [Concomitant]

REACTIONS (1)
  - ANAPHYLACTIC SHOCK [None]
